FAERS Safety Report 7184554-0 (Version None)
Quarter: 2010Q4

REPORT INFORMATION
  Report Type: 
  Country: None (occurrence: None)
  Receive Date: 20101222
  Receipt Date: 20101208
  Transmission Date: 20110411
  Serious: Yes (Hospitalization, Other)
  Sender: FDA-Public Use
  Company Number: US-ELI_LILLY_AND_COMPANY-US201002003436

PATIENT
  Sex: Female
  Weight: 81.633 kg

DRUGS (12)
  1. BYETTA [Suspect]
     Dosage: UNK, UNKNOWN
     Route: 065
     Dates: start: 20070101, end: 20071101
  2. BYETTA [Suspect]
     Dosage: UNK, UNKNOWN
     Route: 065
     Dates: start: 20070201, end: 20070302
  3. BYETTA [Suspect]
     Dosage: UNK, UNKNOWN
     Route: 065
     Dates: start: 20070709, end: 20071206
  4. TYLENOL                                 /SCH/ [Concomitant]
     Indication: HEADACHE
     Dates: start: 20000101
  5. METFORMIN [Concomitant]
     Indication: DIABETES MELLITUS
     Dates: start: 20050101, end: 20070201
  6. LOPID [Concomitant]
     Indication: BLOOD CHOLESTEROL INCREASED
     Dosage: 600 MG, 2/D
     Dates: start: 20050101
  7. PREMPRO [Concomitant]
  8. SYNTHROID [Concomitant]
  9. LOVAZA [Concomitant]
  10. ASPIRIN /USA/ [Concomitant]
  11. ALEVE [Concomitant]
  12. NSAID'S [Concomitant]

REACTIONS (2)
  - ANGIOMYOLIPOMA [None]
  - PANCREATITIS ACUTE [None]
